FAERS Safety Report 15967134 (Version 1)
Quarter: 2019Q1

REPORT INFORMATION
  Report Type: Spontaneous
  Country: US (occurrence: US)
  Receive Date: 20190124
  Receipt Date: 20190124
  Transmission Date: 20190418
  Serious: Yes (Hospitalization)
  Sender: FDA-Public Use
  Company Number: None

PATIENT
  Age: 6 Year
  Sex: Male
  Weight: 17.6 kg

DRUGS (5)
  1. CARBOPLATIN. [Suspect]
     Active Substance: CARBOPLATIN
     Dates: end: 20190101
  2. ETOPOSIDE (VP-16) [Suspect]
     Active Substance: ETOPOSIDE
     Dates: end: 20190101
  3. CISPLATIN. [Suspect]
     Active Substance: CISPLATIN
     Dates: end: 20181029
  4. ZINECARD [Suspect]
     Active Substance: DEXRAZOXANE HYDROCHLORIDE
     Dates: end: 20181120
  5. DOXORUBICIN HYDROCHLORIDE. [Suspect]
     Active Substance: DOXORUBICIN HYDROCHLORIDE
     Dates: end: 20181120

REACTIONS (7)
  - Refusal of treatment by relative [None]
  - Febrile neutropenia [None]
  - Haemoglobin decreased [None]
  - Platelet count decreased [None]
  - Diarrhoea [None]
  - Packed red blood cell transfusion [None]
  - Platelet transfusion [None]

NARRATIVE: CASE EVENT DATE: 20190113
